FAERS Safety Report 5628979-0 (Version None)
Quarter: 2008Q1

REPORT INFORMATION
  Report Type: 
  Country: None (occurrence: None)
  Receive Date: 20080214
  Receipt Date: 20080207
  Transmission Date: 20080703
  Serious: Yes (Death, Other)
  Sender: FDA-Public Use
  Company Number: 163-21880-07121009

PATIENT
  Age: 70 Year
  Sex: Male

DRUGS (4)
  1. REVLIMID [Suspect]
     Indication: MYELODYSPLASTIC SYNDROME
     Dosage: 10 MG, 21 DAYS OF 28 DAYS, ORAL
     Route: 048
     Dates: start: 20070601, end: 20070801
  2. DECITABINE(DECITABINE) [Suspect]
     Indication: MYELODYSPLASTIC SYNDROME
  3. PRBC (BLOOD CELLS, PACKED HUMAN) [Concomitant]
  4. SODIUM CHLORIDE [Concomitant]

REACTIONS (11)
  - APLASTIC ANAEMIA [None]
  - DISEASE PROGRESSION [None]
  - ESCHERICHIA SEPSIS [None]
  - FALL [None]
  - MYELODYSPLASTIC SYNDROME [None]
  - NEUTROPENIC SEPSIS [None]
  - POLLAKIURIA [None]
  - REFUSAL OF TREATMENT BY PATIENT [None]
  - RENAL FAILURE [None]
  - SEPTIC SHOCK [None]
  - TACHYPNOEA [None]
